FAERS Safety Report 4357112-0 (Version None)
Quarter: 2004Q2

REPORT INFORMATION
  Report Type: 
  Country: None (occurrence: None)
  Receive Date: 20040511
  Receipt Date: 20040420
  Transmission Date: 20050107
  Serious: Yes (Hospitalization)
  Sender: FDA-Public Use
  Company Number: DE_040413430

PATIENT
  Age: 36 Year
  Sex: Male

DRUGS (9)
  1. ZYPREXA [Suspect]
     Indication: SCHIZOPHRENIA
     Dosage: 20 MG DAY
     Dates: start: 20021018, end: 20030306
  2. RISPERDAL [Concomitant]
  3. CLOZAPINE [Concomitant]
  4. CITALOPRAM HYDROBROMIDE [Concomitant]
  5. LORAZEPAM [Concomitant]
  6. ASPIRIN [Concomitant]
  7. THEOPHYLLINE [Concomitant]
  8. PULMICORT [Concomitant]
  9. BEROTEC INHALER (FENOTEROL) [Concomitant]

REACTIONS (4)
  - DEPRESSED LEVEL OF CONSCIOUSNESS [None]
  - FACIAL BONES FRACTURE [None]
  - FALL [None]
  - GRAND MAL CONVULSION [None]
